FAERS Safety Report 9123598 (Version 1)
Quarter: 2013Q1

REPORT INFORMATION
  Report Type: Spontaneous
  Country: CA (occurrence: CA)
  Receive Date: 20130114
  Receipt Date: 20130114
  Transmission Date: 20140127
  Serious: Yes (Other)
  Sender: FDA-Public Use
  Company Number: CA-PFIZER INC-2013011249

PATIENT
  Sex: 0

DRUGS (3)
  1. LYRICA [Suspect]
     Dosage: UNK
  2. DILANTIN [Interacting]
     Dosage: UNK
  3. FLEXERIL [Interacting]
     Dosage: UNK

REACTIONS (1)
  - Drug interaction [Unknown]
